FAERS Safety Report 7000624-1 (Version None)
Quarter: 2010Q3

REPORT INFORMATION
  Report Type: 
  Country: None (occurrence: None)
  Receive Date: 20100920
  Receipt Date: 20100907
  Transmission Date: 20110219
  Serious: Yes (Other)
  Sender: FDA-Public Use
  Company Number: US-CELGENEUS-163-21880-10091019

PATIENT

DRUGS (2)
  1. REVLIMID [Suspect]
     Route: 048
     Dates: start: 20080601
  2. BENDAMUSTINE [Concomitant]
     Route: 065

REACTIONS (2)
  - BLOOD LACTATE DEHYDROGENASE INCREASED [None]
  - TUMOUR FLARE [None]
